FAERS Safety Report 12879747 (Version 1)
Quarter: 2016Q4

REPORT INFORMATION
  Report Type: Spontaneous
  Country: US (occurrence: US)
  Receive Date: 20161025
  Receipt Date: 20161025
  Transmission Date: 20170207
  Serious: No
  Sender: FDA-Public Use
  Company Number: US-CIPLA LTD.-2016US17365

PATIENT

DRUGS (1)
  1. ESCITALOPRAM [Suspect]
     Active Substance: ESCITALOPRAM OXALATE
     Indication: HEADACHE
     Dosage: 5 MG, QD, (10MG TABLET BROKEN INTO 5MG HALF CONSUMED EVERY MORNING)
     Route: 065
     Dates: start: 20160729, end: 20160806

REACTIONS (1)
  - Drug ineffective [Unknown]
